FAERS Safety Report 6274616-4 (Version None)
Quarter: 2009Q3

REPORT INFORMATION
  Report Type: 
  Country: None (occurrence: None)
  Receive Date: 20090717
  Receipt Date: 20090713
  Transmission Date: 20100115
  Serious: Yes (Hospitalization)
  Sender: FDA-Public Use
  Company Number: SPV1-2009-01443

PATIENT
  Age: 87 Year
  Sex: Male
  Weight: 80.3 kg

DRUGS (2)
  1. FOSRENOL [Suspect]
     Dosage: MG, 3X/DAY, TID; ORAL
     Route: 048
     Dates: start: 20090101
  2. RENAGEL [Concomitant]

REACTIONS (1)
  - HAEMORRHOIDAL HAEMORRHAGE [None]
